FAERS Safety Report 14221541 (Version 3)
Quarter: 2017Q4

REPORT INFORMATION
  Report Type: Spontaneous
  Country: JP (occurrence: JP)
  Receive Date: 20171124
  Receipt Date: 20171213
  Transmission Date: 20180321
  Serious: No
  Sender: FDA-Public Use
  Company Number: JP-ALLERGAN-1765268US

PATIENT
  Age: 8 Decade
  Sex: Male

DRUGS (3)
  1. E KEPPRA [Concomitant]
     Active Substance: LEVETIRACETAM
     Dosage: UNK
  2. MEMANTINE HCL - BP [Suspect]
     Active Substance: MEMANTINE
     Indication: DEMENTIA
     Dosage: 5 MG, QD
     Route: 048
  3. ARICEPT [Concomitant]
     Active Substance: DONEPEZIL HYDROCHLORIDE
     Dosage: UNK

REACTIONS (2)
  - Epilepsy [Unknown]
  - Somnolence [Not Recovered/Not Resolved]
